FAERS Safety Report 23771722 (Version 1)
Quarter: 2024Q2

REPORT INFORMATION
  Report Type: Spontaneous
  Country: US (occurrence: US)
  Receive Date: 20240423
  Receipt Date: 20240423
  Transmission Date: 20240716
  Serious: No
  Sender: FDA-Public Use
  Company Number: US-SCILEX PHARMACEUTICALS INC.-US-SOR-23-00003

PATIENT

DRUGS (2)
  1. ZTLIDO [Suspect]
     Active Substance: LIDOCAINE
     Indication: Back pain
     Dosage: 1 UNK, Q12H
     Route: 065
  2. ZTLIDO [Suspect]
     Active Substance: LIDOCAINE
     Indication: Arthralgia

REACTIONS (1)
  - Off label use [Unknown]
